FAERS Safety Report 23891276 (Version 1)
Quarter: 2024Q2

REPORT INFORMATION
  Report Type: Report from Study
  Country: US (occurrence: US)
  Receive Date: 20240523
  Receipt Date: 20240523
  Transmission Date: 20240715
  Serious: No
  Sender: FDA-Public Use
  Company Number: US-BIOGEN-2024BI01265943

PATIENT
  Age: 34 Year
  Sex: Female

DRUGS (1)
  1. ZURZUVAE [Suspect]
     Active Substance: ZURANOLONE
     Indication: Product used for unknown indication
     Route: 050

REACTIONS (7)
  - Dysarthria [Unknown]
  - Panic attack [Unknown]
  - Dissociation [Unknown]
  - Feeling drunk [Unknown]
  - Sedation [Unknown]
  - Dizziness [Unknown]
  - Memory impairment [Unknown]
